FAERS Safety Report 23372297 (Version 1)
Quarter: 2024Q1

REPORT INFORMATION
  Report Type: Spontaneous
  Country: US (occurrence: US)
  Receive Date: 20240105
  Receipt Date: 20240105
  Transmission Date: 20240410
  Serious: No
  Sender: FDA-Public Use
  Company Number: US-PFIZER INC-202400000217

PATIENT

DRUGS (1)
  1. PAXLOVID [Suspect]
     Active Substance: NIRMATRELVIR\RITONAVIR
     Indication: COVID-19 treatment
     Dosage: 3 DF (TOOK 3 OF THE NIRMATRELVIR INSTEAD OF TAKING 2 NIRMATRELVIR AND 1 RITONAVIR)
     Dates: start: 202312

REACTIONS (2)
  - Incorrect dose administered [Unknown]
  - Product label confusion [Unknown]

NARRATIVE: CASE EVENT DATE: 20231201
